FAERS Safety Report 5320370-X (Version None)
Quarter: 2007Q2

REPORT INFORMATION
  Report Type: 
  Country: None (occurrence: None)
  Receive Date: 20070509
  Receipt Date: 20070504
  Transmission Date: 20071010
  Serious: Yes (Death)
  Sender: FDA-Public Use
  Company Number: BR-ASTRAZENECA-2007UW09714

PATIENT
  Age: 69 Year
  Sex: Male
  Weight: 73 kg

DRUGS (3)
  1. SYMBICORT [Suspect]
     Indication: BRONCHITIS
     Route: 055
     Dates: start: 20060401
  2. LEXOTAN [Concomitant]
     Route: 048
  3. RIVOTRIL [Concomitant]
     Route: 048

REACTIONS (3)
  - CARDIAC FAILURE [None]
  - MULTI-ORGAN FAILURE [None]
  - PNEUMONIA [None]
